FAERS Safety Report 24610309 (Version 1)
Quarter: 2024Q4

REPORT INFORMATION
  Report Type: Spontaneous
  Country: CH (occurrence: CH)
  Receive Date: 20241112
  Receipt Date: 20241112
  Transmission Date: 20250115
  Serious: Yes (Death, Life-Threatening, Hospitalization, Other)
  Sender: FRESENIUS KABI
  Company Number: CH-FreseniusKabi-FK202416610

PATIENT
  Age: 71 Year
  Sex: Male
  Weight: 73.5 kg

DRUGS (13)
  1. ROCURONIUM BROMIDE [Suspect]
     Active Substance: ROCURONIUM BROMIDE
     Indication: Surgery
     Dosage: FORM OF ADMINISTRATION: SOLUTION?40 MG ROCURONIUM FRESENIUS 50MG/5ML
     Route: 040
     Dates: start: 20240812, end: 20240812
  2. ROCURONIUM BROMIDE [Suspect]
     Active Substance: ROCURONIUM BROMIDE
     Indication: Hypotonia
  3. PROPOFOL [Suspect]
     Active Substance: PROPOFOL
     Indication: Surgery
     Route: 040
     Dates: start: 20240812, end: 20240812
  4. PROPOFOL [Suspect]
     Active Substance: PROPOFOL
     Indication: Induction of anaesthesia
  5. REMIFENTANIL [Suspect]
     Active Substance: REMIFENTANIL
     Indication: Induction of anaesthesia
     Route: 040
     Dates: start: 20240812, end: 20240812
  6. ONDANSETRON [Suspect]
     Active Substance: ONDANSETRON
     Indication: Procedural vomiting
     Route: 040
     Dates: start: 20240812, end: 20240812
  7. FENTANYL [Suspect]
     Active Substance: FENTANYL
     Indication: Surgery
     Route: 065
     Dates: start: 20240812, end: 20240812
  8. DEXAMETHASONE [Suspect]
     Active Substance: DEXAMETHASONE
     Indication: Procedural vomiting
     Route: 040
  9. CHLORHEXIDINE [Concomitant]
     Active Substance: CHLORHEXIDINE
     Indication: Therapeutic gargle
     Route: 002
     Dates: start: 20240808
  10. LIFO-SCRUB [Concomitant]
     Indication: Product used for unknown indication
     Dates: start: 20240808
  11. FUSIDATE SODIUM [Concomitant]
     Active Substance: FUSIDATE SODIUM
     Indication: Product used for unknown indication
     Dosage: 1-0-1-0?FOA: OINTMENT
     Route: 061
     Dates: start: 20240808
  12. MAGNESIUM ASPARTATE HYDROCHLORIDE [Concomitant]
     Active Substance: MAGNESIUM ASPARTATE HYDROCHLORIDE
     Indication: Product used for unknown indication
     Dosage: 1-0-0-0 TO 1-1-1-0, START UNKNOWN
     Route: 048
  13. RIBOFLAVIN [Concomitant]
     Active Substance: RIBOFLAVIN
     Indication: Product used for unknown indication
     Dosage: 1-0-1-0, START UNKNOWN?FOA: CAPSULE
     Route: 048

REACTIONS (1)
  - Anaphylactic shock [Fatal]

NARRATIVE: CASE EVENT DATE: 20240812
